FAERS Safety Report 16163869 (Version 1)
Quarter: 2019Q2

REPORT INFORMATION
  Report Type: Spontaneous
  Country: US (occurrence: US)
  Receive Date: 20190405
  Receipt Date: 20190405
  Transmission Date: 20190711
  Serious: No
  Sender: FDA-Public Use
  Company Number: US-TEVA-2019-US-1025427

PATIENT
  Sex: Female

DRUGS (2)
  1. ANASTROZOLE. [Suspect]
     Active Substance: ANASTROZOLE
     Indication: PROPHYLAXIS
     Dosage: 1 MILLIGRAM DAILY;
     Route: 048
  2. MELOXICAM. [Concomitant]
     Active Substance: MELOXICAM
     Indication: ARTHRALGIA
     Dosage: 15 MILLIGRAM DAILY;
     Route: 048

REACTIONS (3)
  - Insomnia [Recovering/Resolving]
  - Body height decreased [Not Recovered/Not Resolved]
  - Nausea [Unknown]
